FAERS Safety Report 9523976 (Version 1)
Quarter: 2013Q3

REPORT INFORMATION
  Report Type: Spontaneous
  Country: US (occurrence: None)
  Receive Date: 20130912
  Receipt Date: 20130912
  Transmission Date: 20140515
  Serious: Yes (Hospitalization)
  Sender: FDA-Public Use
  Company Number: None

PATIENT
  Age: 66 Year
  Sex: Male
  Weight: 107.5 kg

DRUGS (3)
  1. MECLIZINE HCL [Suspect]
     Indication: VERTIGO POSITIONAL
     Dosage: OTC 50 FIRST DOSE  25 SECOND
     Route: 048
     Dates: start: 20130221, end: 20130221
  2. ASA [Concomitant]
  3. MEVACOR [Concomitant]

REACTIONS (1)
  - Diplopia [None]
